FAERS Safety Report 4778637-X (Version None)
Quarter: 2005Q3

REPORT INFORMATION
  Report Type: 
  Country: None (occurrence: None)
  Receive Date: 20050926
  Receipt Date: 20050920
  Transmission Date: 20060218
  Serious: Yes (Hospitalization)
  Sender: FDA-Public Use
  Company Number: PHRM2005FR02506

PATIENT
  Age: 50 Year
  Sex: Female
  Weight: 54 kg

DRUGS (1)
  1. AREDIA [Suspect]
     Indication: METASTASES TO BONE
     Dosage: 19 COURSES
     Route: 042
     Dates: start: 20040215, end: 20050713

REACTIONS (1)
  - ASEPTIC NECROSIS BONE [None]
